FAERS Safety Report 9474785 (Version 2)
Quarter: 2013Q3

REPORT INFORMATION
  Report Type: Spontaneous
  Country: US (occurrence: US)
  Receive Date: 20130823
  Receipt Date: 20130830
  Transmission Date: 20140515
  Serious: No
  Sender: FDA-Public Use
  Company Number: US-PFIZER INC-2013242593

PATIENT
  Age: 66 Year
  Sex: Female
  Weight: 48.53 kg

DRUGS (2)
  1. TOVIAZ [Suspect]
     Indication: HYPERTONIC BLADDER
     Dosage: 8 MG, 1X/DAY (DAILY)
     Dates: start: 2013
  2. ACTIVELLA [Concomitant]
     Dosage: UNK

REACTIONS (3)
  - Heart rate increased [Unknown]
  - Dysgeusia [Unknown]
  - Dry mouth [Unknown]
